FAERS Safety Report 10966190 (Version 1)
Quarter: 2015Q1

REPORT INFORMATION
  Report Type: Spontaneous
  Country: US (occurrence: None)
  Receive Date: 20150327
  Receipt Date: 20150327
  Transmission Date: 20150721
  Serious: Yes (Other)
  Sender: FDA-Public Use
  Company Number: US-2015CRT000011

PATIENT
  Age: 46 Year
  Sex: Female

DRUGS (15)
  1. AMLODIPINE [Concomitant]
     Active Substance: AMLODIPINE BESYLATE
  2. PATANASE [Concomitant]
     Active Substance: OLOPATADINE HYDROCHLORIDE
  3. AMBIEN [Concomitant]
     Active Substance: ZOLPIDEM TARTRATE
  4. MELATONIN [Concomitant]
     Active Substance: MELATONIN
  5. LOSARTAN [Concomitant]
     Active Substance: LOSARTAN
  6. LYRICA [Concomitant]
     Active Substance: PREGABALIN
  7. ALDACTONE [Concomitant]
     Active Substance: SPIRONOLACTONE
  8. KORLYM [Suspect]
     Active Substance: MIFEPRISTONE
     Indication: CUSHING^S SYNDROME
     Route: 048
     Dates: start: 20140828
  9. CELEBREX [Concomitant]
     Active Substance: CELECOXIB
  10. ULTRAM ER [Concomitant]
     Active Substance: TRAMADOL HYDROCHLORIDE
  11. NASONEX [Concomitant]
     Active Substance: MOMETASONE FUROATE
  12. NORCO [Concomitant]
     Active Substance: ACETAMINOPHEN\HYDROCODONE BITARTRATE
  13. PROVIGIL [Concomitant]
     Active Substance: MODAFINIL
  14. OMEPRAZOLE. [Concomitant]
     Active Substance: OMEPRAZOLE
  15. DIAZEPAM. [Concomitant]
     Active Substance: DIAZEPAM

REACTIONS (19)
  - Asthenia [None]
  - Nausea [None]
  - Erythromelalgia [None]
  - Glycosylated haemoglobin decreased [None]
  - Fatigue [None]
  - Constipation [None]
  - Blood pressure increased [None]
  - Adrenal neoplasm [None]
  - Pain in extremity [None]
  - Disease progression [None]
  - Pituitary-dependent Cushing^s syndrome [None]
  - Condition aggravated [None]
  - Hot flush [None]
  - Ocular discomfort [None]
  - Arthralgia [None]
  - Weight decreased [None]
  - Joint swelling [None]
  - Heart rate increased [None]
  - Eye pain [None]

NARRATIVE: CASE EVENT DATE: 2014
